FAERS Safety Report 9580774 (Version 1)
Quarter: 2013Q4

REPORT INFORMATION
  Report Type: Spontaneous
  Country: US (occurrence: US)
  Receive Date: 20131002
  Receipt Date: 20131002
  Transmission Date: 20140711
  Serious: No
  Sender: FDA-Public Use
  Company Number: US-ASTRAZENECA-2013SE70970

PATIENT
  Age: 64 Year
  Sex: Male

DRUGS (4)
  1. BRILINTA [Suspect]
     Indication: ACUTE CORONARY SYNDROME
     Route: 048
  2. BRILINTA [Suspect]
     Indication: STENT PLACEMENT
     Route: 048
  3. STATIN -UNSPECIFIED [Concomitant]
  4. UNSPECIFIED BLOOD PRESSURE MEDICATION [Concomitant]

REACTIONS (3)
  - Haemorrhage [Unknown]
  - Nausea [Unknown]
  - Intentional drug misuse [Unknown]
